FAERS Safety Report 23245717 (Version 2)
Quarter: 2024Q1

REPORT INFORMATION
  Report Type: Report from Study
  Country: US (occurrence: US)
  Receive Date: 20231130
  Receipt Date: 20240118
  Transmission Date: 20240410
  Serious: Yes (Other)
  Sender: FDA-Public Use
  Company Number: US-ALXN-A202305542

PATIENT
  Age: 71 Year
  Sex: Female

DRUGS (1)
  1. ULTOMIRIS [Suspect]
     Active Substance: RAVULIZUMAB-CWVZ
     Indication: Myasthenia gravis
     Dosage: UNK
     Route: 042
     Dates: start: 20230113

REACTIONS (5)
  - Gastrooesophageal reflux disease [Recovered/Resolved]
  - Eyelid ptosis [Recovering/Resolving]
  - Ulcer haemorrhage [Unknown]
  - Haemorrhoids [Recovered/Resolved]
  - Ocular hyperaemia [Not Recovered/Not Resolved]

NARRATIVE: CASE EVENT DATE: 20231001
